FAERS Safety Report 22001785 (Version 2)
Quarter: 2023Q1

REPORT INFORMATION
  Report Type: Spontaneous
  Country: PT (occurrence: PT)
  Receive Date: 20230216
  Receipt Date: 20230316
  Transmission Date: 20230418
  Serious: Yes (Other)
  Sender: FDA-Public Use
  Company Number: PT-TEVA-2023-PT-2855113

PATIENT
  Age: 62 Year
  Sex: Male

DRUGS (1)
  1. SUNITINIB [Suspect]
     Active Substance: SUNITINIB
     Indication: Metastatic renal cell carcinoma
     Dosage: 100 MILLIGRAM DAILY; 50MG SUNITINIB 2 DAILY EVERY 3 WEEKS
     Route: 048

REACTIONS (2)
  - Hypothyroidism [Recovered/Resolved]
  - Hypertension [Recovered/Resolved]
